FAERS Safety Report 16655938 (Version 1)
Quarter: 2019Q3

REPORT INFORMATION
  Report Type: Spontaneous
  Country: US (occurrence: US)
  Receive Date: 20190731
  Receipt Date: 20190731
  Transmission Date: 20191004
  Serious: Yes (Hospitalization)
  Sender: FDA-Public Use
  Company Number: None

PATIENT
  Age: 66 Year
  Sex: Female
  Weight: 75.6 kg

DRUGS (6)
  1. CINVANTI [Concomitant]
     Active Substance: APREPITANT
     Dates: start: 20190718, end: 20190718
  2. DOXIL [Concomitant]
     Active Substance: DOXORUBICIN HYDROCHLORIDE
     Dates: start: 20190718, end: 20190718
  3. DECADRON [Concomitant]
     Active Substance: DEXAMETHASONE
     Dates: start: 20190718, end: 20190718
  4. SUSTOL [Suspect]
     Active Substance: GRANISETRON
     Indication: VOMITING
     Dosage: ?          OTHER FREQUENCY:WITH CHEMOTHERAPY;?
     Route: 058
     Dates: start: 20190718
  5. CARBOPLATIN. [Concomitant]
     Active Substance: CARBOPLATIN
     Dates: start: 20190718, end: 20190718
  6. SUSTOL [Suspect]
     Active Substance: GRANISETRON
     Indication: NAUSEA
     Dosage: ?          OTHER FREQUENCY:WITH CHEMOTHERAPY;?
     Route: 058
     Dates: start: 20190718

REACTIONS (7)
  - Skin discolouration [None]
  - Injection site swelling [None]
  - Hypoaesthesia [None]
  - Injection site erythema [None]
  - Injection site pain [None]
  - Injection site warmth [None]
  - Blood pressure decreased [None]

NARRATIVE: CASE EVENT DATE: 20190731
